FAERS Safety Report 26000947 (Version 1)
Quarter: 2025Q4

REPORT INFORMATION
  Report Type: Spontaneous
  Country: US (occurrence: None)
  Receive Date: 20251105
  Receipt Date: 20251105
  Transmission Date: 20260117
  Serious: No
  Sender: FDA-CTU
  Company Number: None

PATIENT

DRUGS (2)
  1. PIRFENIDONE [Suspect]
     Active Substance: PIRFENIDONE
  2. OFEV [Suspect]
     Active Substance: NINTEDANIB

REACTIONS (5)
  - Nausea [None]
  - Blood pressure increased [None]
  - Fibrosis [None]
  - Condition aggravated [None]
  - Therapy cessation [None]
